FAERS Safety Report 5402245-0 (Version None)
Quarter: 2007Q3

REPORT INFORMATION
  Report Type: 
  Country: None (occurrence: None)
  Receive Date: 20070801
  Receipt Date: 20070725
  Transmission Date: 20080115
  Serious: Yes (Death, Hospitalization)
  Sender: FDA-Public Use
  Company Number: US-JNJFOC-20070702840

PATIENT
  Age: 92 Year
  Sex: Male
  Weight: 70.5 kg

DRUGS (9)
  1. DOXORUBICIN HCL [Suspect]
     Indication: DIFFUSE LARGE B-CELL LYMPHOMA
     Dosage: COURSE 5.  OVER 1 HOUR ON DAY 1.
     Route: 042
  2. RITUXAN [Suspect]
     Indication: DIFFUSE LARGE B-CELL LYMPHOMA
     Dosage: COURSE 5.
     Route: 042
  3. CYCLOPHOSPHAMIDE [Suspect]
     Indication: DIFFUSE LARGE B-CELL LYMPHOMA
     Dosage: COURSE 5.  OVER 1 HOUR ON DAY 1.
     Route: 042
  4. VINCRISTINE [Suspect]
     Indication: DIFFUSE LARGE B-CELL LYMPHOMA
     Dosage: COURSE 5.  OVER 15 MINS ON DAY 1.
     Route: 042
  5. PREDNISONE [Suspect]
     Indication: DIFFUSE LARGE B-CELL LYMPHOMA
     Dosage: COURSE 5.  FOR 5 DAYS ON DAYS 1-5.
     Route: 048
  6. NEULASTA [Suspect]
     Indication: DIFFUSE LARGE B-CELL LYMPHOMA
     Dosage: 1 DOSE 24 HOURS AFTER CHEMOTHERAPY
     Route: 058
  7. COREG [Concomitant]
     Route: 065
  8. DIOVAN HCT [Concomitant]
     Route: 065
  9. DYNACIRC [Concomitant]
     Route: 065

REACTIONS (5)
  - ANOREXIA [None]
  - DYSPNOEA [None]
  - FATIGUE [None]
  - HYPOTENSION [None]
  - PNEUMONIA [None]
